FAERS Safety Report 7661572-7 (Version None)
Quarter: 2011Q3

REPORT INFORMATION
  Report Type: 
  Country: None (occurrence: None)
  Receive Date: 20110805
  Receipt Date: 20101021
  Transmission Date: 20111222
  Serious: No
  Sender: FDA-Public Use
  Company Number: US-ABBOTT-10P-163-0680071-00

PATIENT
  Sex: Female
  Weight: 67.192 kg

DRUGS (4)
  1. LEVOTHYROXINE SODIUM [Concomitant]
     Indication: HYPOTHYROIDISM
  2. FOSAMAX [Concomitant]
     Indication: OSTEOPENIA
  3. NIASPAN [Suspect]
     Indication: BLOOD CHOLESTEROL INCREASED
     Route: 048
     Dates: start: 20101019
  4. LISINOPRIL [Concomitant]
     Indication: HYPERTENSION
     Dates: start: 20101015

REACTIONS (6)
  - ABDOMINAL DISTENSION [None]
  - ABDOMINAL PAIN UPPER [None]
  - ABDOMINAL DISCOMFORT [None]
  - FLATULENCE [None]
  - NAUSEA [None]
  - DIARRHOEA [None]
